FAERS Safety Report 4961861-0 (Version None)
Quarter: 2006Q2

REPORT INFORMATION
  Report Type: 
  Country: None (occurrence: None)
  Receive Date: 20060404
  Receipt Date: 20060315
  Transmission Date: 20061013
  Serious: Yes (Other)
  Sender: FDA-Public Use
  Company Number: ES-AVENTIS-200612688GDDC

PATIENT
  Age: 31 Year
  Sex: Female

DRUGS (3)
  1. RIFAMPIN AND ISONIAZID [Suspect]
     Indication: PULMONARY TUBERCULOSIS
     Dosage: DOSE: 2 TABLETS
     Route: 048
     Dates: start: 20060218, end: 20060221
  2. CEMIDON [Concomitant]
     Indication: TUBERCULOSIS
     Route: 048
     Dates: start: 20060307
  3. MYAMBUTOL [Concomitant]
     Indication: TUBERCULOSIS
     Route: 048
     Dates: start: 20060307

REACTIONS (3)
  - CONDITION AGGRAVATED [None]
  - MYALGIA [None]
  - POLYMYOSITIS [None]
